FAERS Safety Report 25675081 (Version 1)
Quarter: 2025Q3

REPORT INFORMATION
  Report Type: Spontaneous
  Country: EU (occurrence: EU)
  Receive Date: 20250813
  Receipt Date: 20250813
  Transmission Date: 20251020
  Serious: Yes (Life-Threatening, Hospitalization, Other)
  Sender: PANACEA BIOTEC PHARMA LIMITED
  Company Number: EU-PBT-010670

PATIENT
  Age: 50 Year
  Sex: Male

DRUGS (1)
  1. TACROLIMUS [Suspect]
     Active Substance: TACROLIMUS
     Indication: Prophylaxis against transplant rejection
     Route: 065
     Dates: start: 2022

REACTIONS (2)
  - Kaposi sarcoma inflammatory cytokine syndrome [Recovered/Resolved]
  - Kaposi^s sarcoma [Recovered/Resolved]

NARRATIVE: CASE EVENT DATE: 20230201
